FAERS Safety Report 10302445 (Version 1)
Quarter: 2014Q3

REPORT INFORMATION
  Report Type: Spontaneous
  Country: JP (occurrence: JP)
  Receive Date: 20140714
  Receipt Date: 20140714
  Transmission Date: 20150326
  Serious: Yes (Other)
  Sender: FDA-Public Use
  Company Number: JP-MYLANLABS-2014S1016030

PATIENT
  Sex: Female

DRUGS (4)
  1. ALENDRONATE SODIUM. [Suspect]
     Active Substance: ALENDRONATE SODIUM
     Indication: OSTEOPOROSIS
     Route: 048
     Dates: start: 201303, end: 20130830
  2. POULTICE [Concomitant]
     Indication: PRODUCT USED FOR UNKNOWN INDICATION
     Dosage: PATCH
     Route: 061
  3. HYALURONATE [Concomitant]
     Active Substance: HYALURONIC ACID
     Indication: ARTHROPATHY
     Dosage: INJECTION
  4. MUSCLE RELAXANTS [Concomitant]
     Active Substance: UNSPECIFIED INGREDIENT
     Indication: MUSCULOSKELETAL STIFFNESS

REACTIONS (6)
  - Convulsion [Unknown]
  - Abdominal rigidity [Unknown]
  - Loss of consciousness [Unknown]
  - Deafness [Unknown]
  - Abdominal distension [Recovering/Resolving]
  - Visual acuity reduced [Unknown]

NARRATIVE: CASE EVENT DATE: 20130901
